FAERS Safety Report 7407115-4 (Version None)
Quarter: 2011Q2

REPORT INFORMATION
  Report Type: 
  Country: None (occurrence: None)
  Receive Date: 20110411
  Receipt Date: 20110330
  Transmission Date: 20111010
  Serious: Yes (Other)
  Sender: FDA-Public Use
  Company Number: JP-ASTRAZENECA-2011SE19536

PATIENT
  Sex: Male

DRUGS (7)
  1. ADONA [Concomitant]
  2. MAGMITT [Concomitant]
  3. PERMAX [Concomitant]
  4. CARBIDOPA AND LEVODOPA [Concomitant]
  5. SEROQUEL [Suspect]
     Route: 048
     Dates: start: 20110329, end: 20110329
  6. PROSTAL [Concomitant]
  7. DOPS [Concomitant]

REACTIONS (2)
  - NEUROLEPTIC MALIGNANT SYNDROME [None]
  - DRUG ADMINISTRATION ERROR [None]
